FAERS Safety Report 4408697-7 (Version None)
Quarter: 2004Q3

REPORT INFORMATION
  Report Type: 
  Country: None (occurrence: None)
  Receive Date: 20040723
  Receipt Date: 20040713
  Transmission Date: 20050211
  Serious: Yes (Congenital Anomaly)
  Sender: FDA-Public Use
  Company Number: 2004-03122

PATIENT
  Sex: Female
  Weight: 0.4 kg

DRUGS (2)
  1. MINOXIDIL [Suspect]
     Indication: ALOPECIA
     Dosage: BID ^FOR A COUPLE OF YEARS^, TOPICAL
     Route: 061
  2. ACETAMINOPHEN [Concomitant]

REACTIONS (5)
  - ANGIOPATHY [None]
  - CONGENITAL CENTRAL NERVOUS SYSTEM ANOMALY [None]
  - DRUG EXPOSURE DURING PREGNANCY [None]
  - FOETAL MALFORMATION [None]
  - HEART DISEASE CONGENITAL [None]
